FAERS Safety Report 16471100 (Version 1)
Quarter: 2019Q2

REPORT INFORMATION
  Report Type: Spontaneous
  Country: US (occurrence: US)
  Receive Date: 20190624
  Receipt Date: 20190624
  Transmission Date: 20190711
  Serious: No
  Sender: FDA-Public Use
  Company Number: US-AVEDRO-AVE-2019-0097-AE

PATIENT
  Age: 23 Year
  Sex: Male

DRUGS (1)
  1. AVEDRO CROSS-LINKING PRODUCT(S), UNSPECIFIED [Suspect]
     Active Substance: RIBOFLAVIN 5^-PHOSPHATE SODIUM
     Indication: KERATOCONUS
     Route: 047

REACTIONS (4)
  - Eye irritation [Recovered/Resolved]
  - Asthenopia [Recovered/Resolved]
  - Eye pain [Recovered/Resolved]
  - Photophobia [Recovered/Resolved]

NARRATIVE: CASE EVENT DATE: 201806
